FAERS Safety Report 24376044 (Version 1)
Quarter: 2024Q3

REPORT INFORMATION
  Report Type: Spontaneous
  Country: US (occurrence: None)
  Receive Date: 20240927
  Receipt Date: 20240927
  Transmission Date: 20241016
  Serious: Yes (Hospitalization, Other)
  Sender: Public
  Company Number: None

PATIENT
  Age: 68 Year
  Sex: Male

DRUGS (1)
  1. ABIRATERONE [Suspect]
     Active Substance: ABIRATERONE
     Dosage: FREQUENCY : DAILY;?
     Dates: start: 20240921

REACTIONS (5)
  - Atrial fibrillation [None]
  - Fatigue [None]
  - Oedema peripheral [None]
  - Fluid retention [None]
  - Nocturia [None]
